FAERS Safety Report 15067080 (Version 6)
Quarter: 2020Q3

REPORT INFORMATION
  Report Type: Spontaneous
  Country: JP (occurrence: JP)
  Receive Date: 20180626
  Receipt Date: 20200701
  Transmission Date: 20201102
  Serious: Yes (Hospitalization, Other)
  Sender: FDA-Public Use
  Company Number: JP-GLAXOSMITHKLINE-JP2018JPN106542

PATIENT
  Age: 34 Year
  Sex: Female
  Weight: 61 kg

DRUGS (10)
  1. KIPRES [Concomitant]
     Active Substance: MONTELUKAST SODIUM
     Indication: ASTHMA
     Dosage: UNK
     Dates: start: 20161012
  2. FLUTIFORM AEROSOL [Concomitant]
     Active Substance: FLUTICASONE PROPIONATE\FORMOTEROL FUMARATE
     Indication: ASTHMA
     Dosage: UNK
     Dates: start: 20160927
  3. MEPOLIZUMAB [Suspect]
     Active Substance: MEPOLIZUMAB
     Dosage: 100 MG, 1D
     Route: 058
     Dates: start: 20180613, end: 20180613
  4. MEPOLIZUMAB [Suspect]
     Active Substance: MEPOLIZUMAB
     Indication: ASTHMA
     Dosage: 100 MG, EVERY 4 WEEKS
     Route: 058
     Dates: start: 201611
  5. OMALIZUMAB (GENETICAL RECOMBINATION) [Suspect]
     Active Substance: OMALIZUMAB
     Indication: ASTHMA
     Dosage: 450 MG
     Route: 058
  6. SPIRIVA RESPIMAT [Concomitant]
     Active Substance: TIOTROPIUM BROMIDE
     Indication: ASTHMA
     Dosage: UNK
     Dates: start: 20161107
  7. UNIPHYL LA [Concomitant]
     Active Substance: THEOPHYLLINE ANHYDROUS
     Indication: ASTHMA
     Dosage: UNK
     Dates: start: 20161012
  8. FASENRA [Suspect]
     Active Substance: BENRALIZUMAB
     Indication: ASTHMA
     Dosage: UNK
     Route: 058
     Dates: start: 20180514, end: 2018
  9. BETAMETHASONE. [Concomitant]
     Active Substance: BETAMETHASONE
     Dosage: UNK
     Route: 041
  10. METHYLPREDNISOLONE. [Concomitant]
     Active Substance: METHYLPREDNISOLONE
     Route: 041

REACTIONS (14)
  - Wheezing [Recovered/Resolved]
  - Asthma [Unknown]
  - Dyspnoea [Recovered/Resolved]
  - Anaphylactoid reaction [Recovering/Resolving]
  - Rash erythematous [Recovering/Resolving]
  - Pruritus [Recovering/Resolving]
  - Loss of consciousness [Recovered/Resolved]
  - Anaphylactic reaction [Recovered/Resolved]
  - Neck pain [Recovered/Resolved]
  - Injection site erythema [Recovered/Resolved]
  - Injection site warmth [Recovered/Resolved]
  - Stridor [Recovered/Resolved]
  - Pruritus [Recovered/Resolved]
  - Rash [Recovered/Resolved]

NARRATIVE: CASE EVENT DATE: 20180514
